FAERS Safety Report 9551683 (Version 1)
Quarter: 2013Q3

REPORT INFORMATION
  Report Type: Spontaneous
  Country: US (occurrence: US)
  Receive Date: 20130925
  Receipt Date: 20130925
  Transmission Date: 20140515
  Serious: No
  Sender: FDA-Public Use
  Company Number: US-JNJFOC-20130913355

PATIENT
  Sex: Male

DRUGS (1)
  1. FENTANYL TRANSDERMA L SYSTEM [Suspect]
     Indication: PAIN MANAGEMENT
     Route: 062
     Dates: start: 2013

REACTIONS (3)
  - Drug dose omission [Unknown]
  - Product quality issue [Unknown]
  - Wrong technique in drug usage process [Unknown]
